FAERS Safety Report 6901011-4 (Version None)
Quarter: 2010Q3

REPORT INFORMATION
  Report Type: 
  Country: None (occurrence: None)
  Receive Date: 20100803
  Receipt Date: 20100715
  Transmission Date: 20110219
  Serious: Yes (Disabling)
  Sender: FDA-Public Use
  Company Number: FR-CELGENEUS-056-C5013-10051539

PATIENT
  Sex: Male
  Weight: 50.5 kg

DRUGS (5)
  1. LENALIDOMIDE [Suspect]
     Indication: MANTLE CELL LYMPHOMA
     Route: 048
     Dates: start: 20100427, end: 20100428
  2. LENALIDOMIDE [Suspect]
     Route: 048
     Dates: start: 20100126
  3. RED BLOOD CELL TRANSFUSION [Concomitant]
     Route: 051
     Dates: start: 20100428, end: 20100428
  4. INNOHEP [Concomitant]
     Indication: PHLEBITIS
     Route: 058
     Dates: start: 20100309
  5. NEORECORMON [Concomitant]
     Indication: ANAEMIA
     Route: 058
     Dates: start: 20100426

REACTIONS (1)
  - DEAFNESS BILATERAL [None]
